FAERS Safety Report 4685601-8 (Version None)
Quarter: 2005Q2

REPORT INFORMATION
  Report Type: 
  Country: None (occurrence: None)
  Receive Date: 20050608
  Receipt Date: 20050525
  Transmission Date: 20051028
  Serious: Yes (Hospitalization)
  Sender: FDA-Public Use
  Company Number: D-A2501011-3741

PATIENT
  Age: 73 Year
  Sex: Male
  Weight: 72 kg

DRUGS (4)
  1. DONEPEZIL HCL [Suspect]
     Indication: DEMENTIA ALZHEIMER'S TYPE
     Dosage: 5 MG , 1 IN 1 D, ORAL
     Route: 048
     Dates: start: 20041004, end: 20050225
  2. MEMANTINE HYDROCHLORIDE (MEMANTINE HYDROCHLORIDE) [Concomitant]
  3. VALSARTAN [Concomitant]
  4. CRESTOR [Concomitant]

REACTIONS (6)
  - ASTHENIA [None]
  - BRADYCARDIA [None]
  - CONDITION AGGRAVATED [None]
  - FATIGUE [None]
  - HYPERHIDROSIS [None]
  - NERVE INJURY [None]
